FAERS Safety Report 10174868 (Version 2)
Quarter: 2015Q1

REPORT INFORMATION
  Report Type: Spontaneous
  Country: IT (occurrence: IT)
  Receive Date: 20140515
  Receipt Date: 20150120
  Transmission Date: 20150720
  Serious: Yes (Other)
  Sender: FDA-Public Use
  Company Number: IT-ELI_LILLY_AND_COMPANY-IT201405001674

PATIENT
  Age: 86 Year
  Sex: Female

DRUGS (1)
  1. ZYPREXA [Suspect]
     Active Substance: OLANZAPINE
     Indication: SENILE DEMENTIA
     Dosage: UNK, UNKNOWN
     Route: 048
     Dates: start: 20140101

REACTIONS (5)
  - Off label use [Unknown]
  - Sopor [Recovering/Resolving]
  - Fall [Unknown]
  - Joint injury [Unknown]
  - Head injury [Unknown]

NARRATIVE: CASE EVENT DATE: 20140420
